FAERS Safety Report 13290600 (Version 1)
Quarter: 2017Q1

REPORT INFORMATION
  Report Type: Spontaneous
  Country: FR (occurrence: FR)
  Receive Date: 20170303
  Receipt Date: 20170303
  Transmission Date: 20170428
  Serious: Yes (Hospitalization)
  Sender: FDA-Public Use
  Company Number: FR-ROCHE-1901270

PATIENT
  Age: 41 Year
  Sex: Female

DRUGS (17)
  1. TENORMIN [Concomitant]
     Active Substance: ATENOLOL
     Dosage: LONG-TERM TREATMENT
     Route: 048
  2. RENAGEL [Concomitant]
     Active Substance: SEVELAMER HYDROCHLORIDE
     Dosage: LONG-TERM TREATMENT
     Route: 048
  3. CORTANCYL [Concomitant]
     Active Substance: PREDNISONE
     Dosage: LONG-TERM TREATMENT
     Route: 048
  4. VICTRELIS [Suspect]
     Active Substance: BOCEPREVIR
     Route: 048
     Dates: start: 20161016, end: 201612
  5. MIRCERA [Concomitant]
     Active Substance: METHOXY POLYETHYLENE GLYCOL-EPOETIN BETA
     Dosage: LONG-TERM TREATMENT
     Route: 048
  6. PEGASYS [Suspect]
     Active Substance: PEGINTERFERON ALFA-2A
     Route: 058
     Dates: start: 20161016, end: 201612
  7. APROVEL [Concomitant]
     Active Substance: IRBESARTAN
     Dosage: LONG-TERM TREATMENT
     Route: 048
  8. CALCIDIA [Concomitant]
     Active Substance: CALCIUM POLYCARBOPHIL
     Dosage: LONG-TERM TREATMENT
     Route: 048
  9. PEGASYS [Suspect]
     Active Substance: PEGINTERFERON ALFA-2A
     Indication: CHRONIC HEPATITIS C
     Route: 058
     Dates: start: 20130614, end: 20150913
  10. INEXIUM [Concomitant]
     Active Substance: ESOMEPRAZOLE
     Dosage: LONG-TERM TREATMENT
     Route: 048
  11. LEVOCARNIL [Concomitant]
     Active Substance: LEVOCARNITINE
     Dosage: LONG-TERM TREATMENT
     Route: 048
  12. KARDEGIC [Concomitant]
     Active Substance: ASPIRIN LYSINE
     Dosage: LONG-TERM TREATMENT
     Route: 048
  13. REBETOL [Suspect]
     Active Substance: RIBAVIRIN
     Indication: CHRONIC HEPATITIS C
     Route: 048
     Dates: start: 20130614, end: 20130913
  14. VICTRELIS [Suspect]
     Active Substance: BOCEPREVIR
     Indication: CHRONIC HEPATITIS C
     Route: 048
     Dates: start: 20130614, end: 20130913
  15. UVEDOSE [Concomitant]
     Active Substance: CHOLECALCIFEROL
     Dosage: LONG-TERM TREATMENT
     Route: 048
  16. REBETOL [Suspect]
     Active Substance: RIBAVIRIN
     Route: 048
     Dates: start: 20161016, end: 201612
  17. UN ALPHA [Concomitant]
     Dosage: LONG-TERM TREATMENT
     Route: 048

REACTIONS (2)
  - Paraesthesia [Not Recovered/Not Resolved]
  - Anaemia [Recovered/Resolved]

NARRATIVE: CASE EVENT DATE: 201309
